FAERS Safety Report 6348236-7 (Version None)
Quarter: 2009Q3

REPORT INFORMATION
  Report Type: 
  Country: None (occurrence: None)
  Receive Date: 20090910
  Receipt Date: 20090908
  Transmission Date: 20100115
  Serious: Yes (Hospitalization)
  Sender: FDA-Public Use
  Company Number: US-MERCK-0909USA00969

PATIENT
  Age: 65 Year
  Sex: Female

DRUGS (6)
  1. SINGULAIR [Suspect]
     Indication: CHRONIC OBSTRUCTIVE PULMONARY DISEASE
     Route: 048
  2. ADVAIR HFA [Suspect]
     Indication: CHRONIC OBSTRUCTIVE PULMONARY DISEASE
     Dates: start: 20080901
  3. ADVAIR HFA [Suspect]
  4. LISINOPRIL [Concomitant]
     Route: 048
  5. VERAPAMIL [Concomitant]
     Route: 065
  6. LOVASTATIN [Concomitant]
     Route: 048

REACTIONS (3)
  - DYSPNOEA [None]
  - MYODESOPSIA [None]
  - WEIGHT INCREASED [None]
